FAERS Safety Report 8258914-0 (Version None)
Quarter: 2012Q2

REPORT INFORMATION
  Report Type: 
  Country: None (occurrence: None)
  Receive Date: 20120404
  Receipt Date: 20120326
  Transmission Date: 20120825
  Serious: Yes (Other)
  Sender: FDA-Public Use
  Company Number: US-ELI_LILLY_AND_COMPANY-US201112006491

PATIENT
  Sex: Male

DRUGS (12)
  1. FORTEO [Suspect]
     Dosage: 20 UG, QD
     Route: 065
  2. VITAMIN D [Concomitant]
     Dosage: 2000 IU, QD
  3. FORTEO [Suspect]
     Indication: OSTEOPOROSIS
     Dosage: 20 UG, QD
     Dates: start: 20090101
  4. NEXIUM [Concomitant]
  5. ANALGESICS [Concomitant]
     Indication: PAIN
  6. MULTI-VITAMINS [Concomitant]
     Dosage: UNK, QD
  7. FORTEO [Suspect]
     Dosage: 20 UG, QD
     Dates: start: 20111215
  8. NEURONTIN [Concomitant]
     Indication: PAIN
  9. XANAX [Concomitant]
     Dosage: UNK
  10. FORTEO [Suspect]
     Dosage: 20 UG, QD
  11. VALTREX [Concomitant]
     Indication: RASH
  12. TUMS                               /00193601/ [Concomitant]
     Indication: ANTACID THERAPY

REACTIONS (11)
  - FATIGUE [None]
  - URINE ABNORMALITY [None]
  - MALAISE [None]
  - ARTHRALGIA [None]
  - INFLUENZA LIKE ILLNESS [None]
  - MYALGIA [None]
  - HYPERHIDROSIS [None]
  - HIP FRACTURE [None]
  - PYREXIA [None]
  - BONE DENSITY DECREASED [None]
  - FEELING HOT [None]
